FAERS Safety Report 18959278 (Version 2)
Quarter: 2021Q1

REPORT INFORMATION
  Report Type: Spontaneous
  Country: IT (occurrence: IT)
  Receive Date: 20210302
  Receipt Date: 20210316
  Transmission Date: 20210420
  Serious: Yes (Other)
  Sender: FDA-Public Use
  Company Number: IT-PFIZER INC-2021193596

PATIENT
  Age: 26 Year
  Sex: Female

DRUGS (3)
  1. CISPLATIN. [Suspect]
     Active Substance: CISPLATIN
     Indication: MEDULLOBLASTOMA
     Dosage: UNK, CYCLIC (2 CYCLICAL)
  2. VINCRISTINE SULFATE. [Suspect]
     Active Substance: VINCRISTINE SULFATE
     Indication: MEDULLOBLASTOMA
     Dosage: UNK, CYCLIC (2 CYCLICAL)
  3. LOMUSTINE. [Concomitant]
     Active Substance: LOMUSTINE
     Indication: MEDULLOBLASTOMA
     Dosage: UNK, CYCLIC (2 CYCLICAL)

REACTIONS (4)
  - Ototoxicity [Unknown]
  - Neurotoxicity [Unknown]
  - Gait inability [Unknown]
  - Off label use [Unknown]
